FAERS Safety Report 10670913 (Version 2)
Quarter: 2014Q4

REPORT INFORMATION
  Report Type: Spontaneous
  Country: US (occurrence: US)
  Receive Date: 20141223
  Receipt Date: 20141223
  Transmission Date: 20150529
  Serious: No
  Sender: FDA-Public Use
  Company Number: US-MYLANLABS-2013S1027304

PATIENT
  Sex: Female

DRUGS (1)
  1. LEVETIRACETAM. [Suspect]
     Active Substance: LEVETIRACETAM
     Indication: SEIZURE
     Dosage: 1500 MG,BID
     Route: 048
     Dates: start: 2007, end: 2007

REACTIONS (4)
  - Amnesia [Recovered/Resolved]
  - Dysphemia [Recovered/Resolved]
  - Depressed mood [Recovered/Resolved]
  - Tongue spasm [Recovered/Resolved]

NARRATIVE: CASE EVENT DATE: 2007
